FAERS Safety Report 9150481 (Version 1)
Quarter: 2013Q1

REPORT INFORMATION
  Report Type: Spontaneous
  Country: DE (occurrence: DE)
  Receive Date: 20130308
  Receipt Date: 20130308
  Transmission Date: 20140127
  Serious: Yes (Death)
  Sender: FDA-Public Use
  Company Number: DE-BRISTOL-MYERS SQUIBB COMPANY-17397514

PATIENT
  Age: 4 Decade
  Sex: Female

DRUGS (1)
  1. YERVOY [Suspect]
     Indication: GASTROINTESTINAL NEOPLASM

REACTIONS (2)
  - Death [Fatal]
  - Localised oedema [Unknown]
